FAERS Safety Report 8652338 (Version 2)
Quarter: 2013Q3

REPORT INFORMATION
  Report Type: Spontaneous
  Country: US (occurrence: US)
  Receive Date: 20120706
  Receipt Date: 20130715
  Transmission Date: 20140515
  Serious: Yes (Hospitalization, Other)
  Sender: FDA-Public Use
  Company Number: US-PFIZER INC-2012161147

PATIENT
  Age: 39 Year
  Sex: Male

DRUGS (2)
  1. CHANTIX [Suspect]
     Dosage: 0.5 MG, 2X/DAY (0.5MG TWICE DAILY (STARTER PACK))
     Route: 048
     Dates: start: 20071228
  2. CHANTIX [Suspect]
     Dosage: 1MG CONTINUING MONTH PACK
     Route: 048
     Dates: start: 20080209

REACTIONS (5)
  - Suicidal ideation [Recovered/Resolved]
  - Depression [Unknown]
  - Suicide attempt [Unknown]
  - Nightmare [Unknown]
  - Anxiety [Unknown]
